FAERS Safety Report 8363874-8 (Version None)
Quarter: 2012Q2

REPORT INFORMATION
  Report Type: 
  Country: None (occurrence: None)
  Receive Date: 20120516
  Receipt Date: 20120113
  Transmission Date: 20120825
  Serious: No
  Sender: FDA-Public Use
  Company Number: US-ALEXION-A201200071

PATIENT
  Sex: Female

DRUGS (2)
  1. CLARITIN [Concomitant]
     Indication: PREMEDICATION
     Dosage: 10 MG, UNK
  2. SOLIRIS [Suspect]
     Indication: HAEMOLYTIC URAEMIC SYNDROME
     Dosage: UNK
     Route: 042

REACTIONS (1)
  - HEADACHE [None]
